FAERS Safety Report 16651013 (Version 1)
Quarter: 2019Q3

REPORT INFORMATION
  Report Type: Report from Study
  Country: US (occurrence: US)
  Receive Date: 20190731
  Receipt Date: 20190731
  Transmission Date: 20191004
  Serious: Yes (Other)
  Sender: FDA-Public Use
  Company Number: US-MYLANLABS-2019M1064983

PATIENT
  Sex: Male
  Weight: 78 kg

DRUGS (1)
  1. AMNESTEEM [Suspect]
     Active Substance: ISOTRETINOIN
     Indication: ACNE
     Dosage: 40 MILLIGRAM, QD
     Route: 048
     Dates: start: 20190522, end: 20190708

REACTIONS (4)
  - Suicidal ideation [Unknown]
  - Crying [Unknown]
  - Anger [Unknown]
  - Mood altered [Unknown]

NARRATIVE: CASE EVENT DATE: 2019
